FAERS Safety Report 5144709-3 (Version None)
Quarter: 2006Q4

REPORT INFORMATION
  Report Type: 
  Country: None (occurrence: None)
  Receive Date: 20061031
  Receipt Date: 20061019
  Transmission Date: 20070319
  Serious: Yes (Hospitalization)
  Sender: FDA-Public Use
  Company Number: 2006PV023521

PATIENT
  Age: 50 Year
  Sex: Female

DRUGS (2)
  1. BYETTA [Suspect]
     Indication: DIABETES MELLITUS NON-INSULIN-DEPENDENT
     Dosage: 10 MCG; SC; SEE IMAGE
     Route: 058
     Dates: start: 20050715, end: 20050101
  2. BYETTA [Suspect]
     Indication: DIABETES MELLITUS NON-INSULIN-DEPENDENT
     Dosage: 10 MCG; SC; SEE IMAGE
     Route: 058
     Dates: start: 20050101

REACTIONS (3)
  - CHOLECYSTITIS ACUTE [None]
  - UNEVALUABLE EVENT [None]
  - WEIGHT DECREASED [None]
